FAERS Safety Report 13601681 (Version 1)
Quarter: 2017Q2

REPORT INFORMATION
  Report Type: Spontaneous
  Country: US (occurrence: US)
  Receive Date: 20170601
  Receipt Date: 20170601
  Transmission Date: 20170830
  Serious: No
  Sender: FDA-Public Use
  Company Number: US-BAUSCH-BL-2017-002411

PATIENT
  Sex: Male

DRUGS (3)
  1. ELIDEL [Suspect]
     Active Substance: PIMECROLIMUS
     Indication: ERYTHEMA
     Route: 061
  2. ELIDEL [Suspect]
     Active Substance: PIMECROLIMUS
     Indication: PRURITUS
  3. ELIDEL [Suspect]
     Active Substance: PIMECROLIMUS
     Indication: DRY SKIN

REACTIONS (3)
  - Eye irritation [Unknown]
  - Off label use [Unknown]
  - Hyperhidrosis [Unknown]
